FAERS Safety Report 18369020 (Version 11)
Quarter: 2021Q4

REPORT INFORMATION
  Report Type: Spontaneous
  Country: US (occurrence: US)
  Receive Date: 20201011
  Receipt Date: 20211019
  Transmission Date: 20220303
  Serious: Yes (Other)
  Sender: FDA-Public Use
  Company Number: US-GLAXOSMITHKLINE-US2020AMR197824

PATIENT
  Sex: Female

DRUGS (10)
  1. ZEJULA [Suspect]
     Active Substance: NIRAPARIB
     Indication: Ovarian cancer
     Dosage: 200 MG, QD
     Route: 048
     Dates: start: 20200922
  2. ZEJULA [Suspect]
     Active Substance: NIRAPARIB
     Indication: Fallopian tube cancer
     Dosage: 300 MG, QD
     Route: 048
     Dates: start: 20200923, end: 20201007
  3. ZEJULA [Suspect]
     Active Substance: NIRAPARIB
     Dosage: UNK
     Dates: start: 20200928
  4. ZEJULA [Suspect]
     Active Substance: NIRAPARIB
     Dosage: 300 MG, QD
     Dates: start: 20200929
  5. ZEJULA [Suspect]
     Active Substance: NIRAPARIB
     Dosage: 200 MG, QD
     Dates: start: 202011
  6. ZEJULA [Suspect]
     Active Substance: NIRAPARIB
     Dosage: UNK (200MG QOD ALT WITH 300MG)
     Dates: start: 20201229
  7. ZEJULA [Suspect]
     Active Substance: NIRAPARIB
     Dosage: UNK (200MG QOD ALT WITH 300MG)
  8. ZEJULA [Suspect]
     Active Substance: NIRAPARIB
     Dosage: 200 MG, QD
  9. ZEJULA [Suspect]
     Active Substance: NIRAPARIB
     Dosage: 200 MG, QD
     Dates: start: 20200928
  10. ZEJULA [Suspect]
     Active Substance: NIRAPARIB
     Dosage: 200 MG, QD
     Dates: start: 20210915

REACTIONS (22)
  - Neuropathy peripheral [Unknown]
  - Nausea [Not Recovered/Not Resolved]
  - Illness [Recovered/Resolved]
  - Flatulence [Unknown]
  - Insomnia [Unknown]
  - Asthenia [Unknown]
  - Dizziness [Unknown]
  - Fatigue [Not Recovered/Not Resolved]
  - Pruritus [Unknown]
  - Pain of skin [Unknown]
  - Vomiting [Not Recovered/Not Resolved]
  - Hypotension [Unknown]
  - Gastric disorder [Unknown]
  - Rash erythematous [Unknown]
  - Decreased activity [Recovered/Resolved]
  - Abdominal pain upper [Unknown]
  - Skin burning sensation [Unknown]
  - Photosensitivity reaction [Unknown]
  - Ill-defined disorder [Unknown]
  - Weight decreased [Unknown]
  - Blood potassium decreased [Unknown]
  - Incorrect dose administered [Unknown]
